FAERS Safety Report 9476051 (Version 2)
Quarter: 2013Q3

REPORT INFORMATION
  Report Type: Spontaneous
  Country: JP (occurrence: JP)
  Receive Date: 20130826
  Receipt Date: 20130826
  Transmission Date: 20140515
  Serious: Yes (Other)
  Sender: FDA-Public Use
  Company Number: JP-AMGEN-JPNSP2013056266

PATIENT
  Age: 75 Year
  Sex: Male

DRUGS (6)
  1. ARANESP [Suspect]
     Indication: NEPHROGENIC ANAEMIA
     Dosage: 60 MUG, 1X/WEEK
     Route: 040
     Dates: start: 20120523, end: 201308
  2. ARANESP [Suspect]
     Dosage: 10 MUG, 1X/WEEK
     Route: 040
     Dates: start: 201209, end: 201303
  3. ARANESP [Suspect]
     Dosage: 30 MUG, 1X/WEEK
     Route: 040
     Dates: start: 201304, end: 20130428
  4. ARANESP [Suspect]
     Dosage: 60 MUG, 1X/WEEK
     Route: 040
     Dates: start: 20130429, end: 20130521
  5. ARANESP [Suspect]
     Dosage: 100 MUG, QD
     Route: 040
     Dates: start: 20130626, end: 20130626
  6. EPOGIN S [Suspect]
     Indication: NEPHROGENIC ANAEMIA
     Dosage: 3000 IU, 3X/WEEK
     Route: 042
     Dates: start: 200903, end: 201205

REACTIONS (2)
  - Thymoma [Not Recovered/Not Resolved]
  - Anti-erythropoietin antibody [Not Recovered/Not Resolved]
